FAERS Safety Report 24126368 (Version 1)
Quarter: 2024Q3

REPORT INFORMATION
  Report Type: Spontaneous
  Country: US (occurrence: None)
  Receive Date: 20240722
  Receipt Date: 20240722
  Transmission Date: 20241017
  Serious: Yes (Hospitalization)
  Sender: Public
  Company Number: None

PATIENT
  Sex: Female

DRUGS (4)
  1. RINVOQ [Suspect]
     Active Substance: UPADACITINIB
     Indication: Crohn^s disease
     Dosage: FREQUENCY : DAILY;?
     Route: 048
     Dates: start: 202403
  2. JARDIANCE [Concomitant]
     Active Substance: EMPAGLIFLOZIN
  3. entrestar [Concomitant]
  4. COREG [Concomitant]
     Active Substance: CARVEDILOL

REACTIONS (1)
  - Cardiac failure congestive [None]
